FAERS Safety Report 6801996-0 (Version None)
Quarter: 2010Q2

REPORT INFORMATION
  Report Type: 
  Country: None (occurrence: None)
  Receive Date: 20100629
  Receipt Date: 20100622
  Transmission Date: 20101027
  Serious: Yes (Hospitalization, Other)
  Sender: FDA-Public Use
  Company Number: PHHO2010DK09067

PATIENT
  Sex: Female

DRUGS (2)
  1. MYFORTIC [Suspect]
     Indication: RENAL TRANSPLANT
     Dosage: 720 MG X2
     Route: 048
     Dates: start: 20090901, end: 20100613
  2. NO TREATMENT RECEIVED NOMED [Suspect]
     Dosage: NO TREATMENT RECEIVED

REACTIONS (6)
  - BODY TEMPERATURE INCREASED [None]
  - DIABETES MELLITUS [None]
  - NEUTROPENIA [None]
  - PNEUMOCYSTIS TEST POSITIVE [None]
  - PYREXIA [None]
  - WEIGHT DECREASED [None]
